FAERS Safety Report 10234948 (Version 1)
Quarter: 2014Q2

REPORT INFORMATION
  Report Type: Spontaneous
  Country: US (occurrence: None)
  Receive Date: 20140521
  Receipt Date: 20140521
  Transmission Date: 20141212
  Serious: Yes (Other)
  Sender: FDA-Public Use
  Company Number: 1000054383

PATIENT
  Age: 17 Year
  Sex: Male

DRUGS (1)
  1. FETZIMA [Suspect]
     Indication: DEPRESSION
     Dosage: 20 MG (20 MG, 1 IN 1 D)
     Dates: start: 2014, end: 2014

REACTIONS (2)
  - Blood pressure increased [None]
  - Off label use [None]
